FAERS Safety Report 10421287 (Version 7)
Quarter: 2019Q1

REPORT INFORMATION
  Report Type: Spontaneous
  Country: GB (occurrence: GB)
  Receive Date: 20140831
  Receipt Date: 20190214
  Transmission Date: 20190417
  Serious: Yes (Life-Threatening, Hospitalization, Disabling, Congenital Anomaly, Other)
  Sender: FDA-Public Use
  Company Number: GB-AUROBINDO-AUR-APL-2013-07872

PATIENT

DRUGS (33)
  1. INTELENCE [Suspect]
     Active Substance: ETRAVIRINE
     Indication: ANTIRETROVIRAL THERAPY
     Dosage: 500 MILLIGRAM, ONCE A DAY
     Route: 064
     Dates: start: 20081023
  2. TIPRANAVIR [Suspect]
     Active Substance: TIPRANAVIR
     Indication: PRODUCT USED FOR UNKNOWN INDICATION
     Dosage: UNK
     Route: 064
     Dates: start: 20070605, end: 200810
  3. INSULIN [Concomitant]
     Active Substance: INSULIN NOS
     Indication: GESTATIONAL DIABETES
     Dosage: UNK
     Route: 064
  4. ISENTRESS [Suspect]
     Active Substance: RALTEGRAVIR POTASSIUM
     Dosage: 200 MG,TWO TIMES A DAY,
     Route: 064
  5. NORVIR [Suspect]
     Active Substance: RITONAVIR
     Dosage: 400 MG,ONCE A DAY,
     Route: 064
  6. ETRAVIRINE [Suspect]
     Active Substance: ETRAVIRINE
     Indication: PRODUCT USED FOR UNKNOWN INDICATION
     Dosage: 1000 MILLIGRAM, ONCE A DAY
     Route: 064
     Dates: start: 20081023
  7. TRUVADA [Suspect]
     Active Substance: EMTRICITABINE\TENOFOVIR DISOPROXIL FUMARATE
     Dosage: 32 DOSAGE FORM
     Route: 064
  8. APTIVUS [Suspect]
     Active Substance: TIPRANAVIR
     Dosage: 500 MILLIGRAM, ONCE A DAY
     Route: 064
     Dates: start: 20060905, end: 20081023
  9. ZIDOVUDINE CAPSULES, HARD 100MG [Suspect]
     Active Substance: ZIDOVUDINE
     Indication: HIV INFECTION
     Dosage: UNK UNK,UNK,
     Route: 064
     Dates: start: 20070605, end: 20081023
  10. INTELENCE [Suspect]
     Active Substance: ETRAVIRINE
     Indication: HIV INFECTION
     Dosage: 1000 MILLIGRAM, ONCE A DAY
     Route: 064
     Dates: start: 20081023
  11. ISENTRESS [Suspect]
     Active Substance: RALTEGRAVIR POTASSIUM
     Indication: HIV INFECTION
     Dosage: 400 MILLIGRAM, TWO TIMES A DAY
     Route: 064
     Dates: start: 20081023, end: 20090221
  12. NORVIR [Suspect]
     Active Substance: RITONAVIR
     Indication: HIV INFECTION
     Dosage: UNK
     Route: 064
     Dates: start: 20060905
  13. NORVIR [Suspect]
     Active Substance: RITONAVIR
     Dosage: 200 MILLIGRAM, ONCE A DAY
     Route: 064
     Dates: start: 20060905, end: 20081022
  14. NORVIR [Suspect]
     Active Substance: RITONAVIR
     Dosage: 100 MG,TWO TIMES A DAY,
     Route: 064
     Dates: start: 20060906, end: 20081023
  15. RALTEGRAVIR. [Suspect]
     Active Substance: RALTEGRAVIR
     Indication: PRODUCT USED FOR UNKNOWN INDICATION
     Dosage: 400 MILLIGRAM, ONCE A DAY
     Route: 064
     Dates: start: 20081023, end: 20090221
  16. APTIVUS [Suspect]
     Active Substance: TIPRANAVIR
     Dosage: UNK
     Route: 064
     Dates: start: 20070605, end: 200810
  17. NOVORAPID [Concomitant]
     Active Substance: INSULIN ASPART
     Indication: GESTATIONAL DIABETES
     Dosage: UNK
     Route: 064
  18. INTELENCE [Suspect]
     Active Substance: ETRAVIRINE
     Dosage: 400 MG,ONCE A DAY,
     Route: 064
  19. ISENTRESS [Suspect]
     Active Substance: RALTEGRAVIR POTASSIUM
     Dosage: 2 UNK,ONCE A DAY,BID
     Route: 064
  20. PREDNISOLONE. [Concomitant]
     Active Substance: PREDNISOLONE
     Indication: PRODUCT USED FOR UNKNOWN INDICATION
     Dosage: 25 MILLIGRAM
     Route: 064
  21. ENFUVIRTIDE. [Concomitant]
     Active Substance: ENFUVIRTIDE
     Indication: PRODUCT USED FOR UNKNOWN INDICATION
     Dosage: UNK
     Route: 064
  22. INTELENCE [Suspect]
     Active Substance: ETRAVIRINE
     Dosage: 200 MG,TWO TIMES A DAY,
     Route: 064
     Dates: end: 20081023
  23. OXYGEN. [Concomitant]
     Active Substance: OXYGEN
     Indication: PRODUCT USED FOR UNKNOWN INDICATION
     Dosage: UNK
     Route: 064
  24. NITROUS OXIDE. [Concomitant]
     Active Substance: NITROUS OXIDE
     Indication: PRODUCT USED FOR UNKNOWN INDICATION
     Dosage: UNK
     Route: 064
  25. ZIDOVUDINE CAPSULES, HARD 100MG [Suspect]
     Active Substance: ZIDOVUDINE
     Indication: ANTIVIRAL PROPHYLAXIS
     Dosage: UNK
     Route: 064
  26. INTELENCE [Suspect]
     Active Substance: ETRAVIRINE
     Dosage: 500 MG,TWO TIMES A DAY,
     Route: 064
  27. NORVIR [Suspect]
     Active Substance: RITONAVIR
     Dosage: 200 MG,ONCE A DAY,
     Route: 064
     Dates: start: 20081023
  28. NORVIR [Suspect]
     Active Substance: RITONAVIR
     Dosage: 100 MILLIGRAM
     Route: 064
     Dates: start: 20081023
  29. APTIVUS [Suspect]
     Active Substance: TIPRANAVIR
     Indication: HIV INFECTION
     Dosage: 500 MILLIGRAM, TWO TIMES A DAY
     Route: 064
     Dates: start: 20060905, end: 20081023
  30. NOVORAPID [Concomitant]
     Active Substance: INSULIN ASPART
     Dosage: 200 MILLIGRAM, ONCE A DAY
     Route: 064
  31. PREZISTA [Suspect]
     Active Substance: DARUNAVIR ETHANOLATE
     Indication: HIV INFECTION
     Dosage: UNK
     Route: 064
     Dates: start: 20081023
  32. ISENTRESS [Suspect]
     Active Substance: RALTEGRAVIR POTASSIUM
     Dosage: 800 MG,ONCE A DAY,
     Route: 064
  33. TRUVADA [Suspect]
     Active Substance: EMTRICITABINE\TENOFOVIR DISOPROXIL FUMARATE
     Indication: HIV INFECTION
     Dosage: UNK
     Route: 064
     Dates: start: 20070605, end: 20081023

REACTIONS (31)
  - Congenital generalised lipodystrophy [Unknown]
  - Genitalia external ambiguous [Recovered/Resolved with Sequelae]
  - Gastrointestinal disorder congenital [Recovered/Resolved]
  - Meconium stain [Recovered/Resolved with Sequelae]
  - Musculoskeletal discomfort [Recovered/Resolved with Sequelae]
  - Bladder agenesis [Recovered/Resolved with Sequelae]
  - Caudal regression syndrome [Recovered/Resolved with Sequelae]
  - Congenital anomaly [Unknown]
  - Anal atresia [Recovered/Resolved with Sequelae]
  - Premature baby [Recovered/Resolved]
  - Neural tube defect [Unknown]
  - Congenital musculoskeletal anomaly [Recovered/Resolved]
  - Anencephaly [Unknown]
  - Exomphalos [Recovered/Resolved with Sequelae]
  - Cloacal exstrophy [Recovered/Resolved with Sequelae]
  - Spine malformation [Recovered/Resolved with Sequelae]
  - Foetal exposure during pregnancy [Recovered/Resolved]
  - Congenital ectopic bladder [Unknown]
  - Meningomyelocele [Recovered/Resolved with Sequelae]
  - Blood iron decreased [Recovered/Resolved]
  - Congenital genital malformation [Recovered/Resolved with Sequelae]
  - Musculoskeletal deformity [Recovered/Resolved with Sequelae]
  - Tethered cord syndrome [Recovered/Resolved with Sequelae]
  - Erythema [Recovered/Resolved]
  - Spina bifida [Unknown]
  - Umbilical cord abnormality [Recovered/Resolved with Sequelae]
  - Sepsis neonatal [Recovered/Resolved]
  - Lipodystrophy acquired [Not Recovered/Not Resolved]
  - Fibrosis [Unknown]
  - Aspartate aminotransferase increased [Unknown]
  - Gastrointestinal malformation [Unknown]

NARRATIVE: CASE EVENT DATE: 20080614
